FAERS Safety Report 11674997 (Version 1)
Quarter: 2015Q4

REPORT INFORMATION
  Report Type: Spontaneous
  Country: US (occurrence: US)
  Receive Date: 20151027
  Receipt Date: 20151027
  Transmission Date: 20160304
  Serious: No
  Sender: FDA-Public Use
  Company Number: US-ELI_LILLY_AND_COMPANY-US201001004670

PATIENT
  Sex: Male

DRUGS (5)
  1. FORTEO [Suspect]
     Active Substance: TERIPARATIDE
     Dosage: 20 UG, DAILY (1/D)
     Dates: end: 20100116
  2. DIOVAN [Concomitant]
     Active Substance: VALSARTAN
     Dosage: 80 MG, DAILY (1/D)
  3. CRESTOR [Concomitant]
     Active Substance: ROSUVASTATIN CALCIUM
     Dosage: 5 MG, UNKNOWN
  4. FORTEO [Suspect]
     Active Substance: TERIPARATIDE
     Dosage: 20 UG, DAILY (1/D)
     Dates: end: 20100815
  5. FORTEO [Suspect]
     Active Substance: TERIPARATIDE
     Indication: OSTEOPOROSIS
     Dosage: 20 UG, DAILY (1/D)
     Dates: start: 20091113

REACTIONS (3)
  - Dizziness [Recovered/Resolved]
  - Medication error [Unknown]
  - Nausea [Unknown]

NARRATIVE: CASE EVENT DATE: 2009
